FAERS Safety Report 21658502 (Version 2)
Quarter: 2022Q4

REPORT INFORMATION
  Report Type: Spontaneous
  Country: TR (occurrence: TR)
  Receive Date: 20221129
  Receipt Date: 20221209
  Transmission Date: 20230113
  Serious: No
  Sender: FDA-Public Use
  Company Number: TR-ABBVIE-4212310

PATIENT
  Age: 28 Year
  Sex: Female

DRUGS (5)
  1. LOPINAVIR AND RITONAVIR [Suspect]
     Active Substance: LOPINAVIR\RITONAVIR
     Indication: COVID-19
     Route: 048
  2. METHYLPREDNISOLONE [Concomitant]
     Active Substance: METHYLPREDNISOLONE
     Indication: Pre-eclampsia
     Dosage: PROCEEDED BY 1 MG/KG
  3. immunoglobulin [Concomitant]
     Indication: Pre-eclampsia
     Dosage: 0.4 MG/KG/DAY
     Route: 042
  4. MAGNESIUM [Concomitant]
     Active Substance: MAGNESIUM
     Indication: Product used for unknown indication
     Dosage: SUPPLEMENTATION
  5. VITAMIN D [Concomitant]
     Active Substance: VITAMIN D NOS
     Indication: Pre-eclampsia
     Dosage: SUPPLEMENTATION

REACTIONS (2)
  - Maternal exposure during pregnancy [Unknown]
  - Off label use [Recovered/Resolved]
